FAERS Safety Report 24022773 (Version 2)
Quarter: 2024Q2

REPORT INFORMATION
  Report Type: Report from Study
  Country: VN (occurrence: VN)
  Receive Date: 20240627
  Receipt Date: 20240627
  Transmission Date: 20240716
  Serious: No
  Sender: FDA-Public Use
  Company Number: VN-ROCHE-3517207

PATIENT
  Age: 33 Year
  Sex: Male

DRUGS (8)
  1. ALECTINIB [Suspect]
     Active Substance: ALECTINIB
     Indication: Non-small cell lung cancer metastatic
     Route: 048
     Dates: start: 20220425
  2. NATRI CLORID [Concomitant]
     Route: 042
     Dates: start: 20220728, end: 20220728
  3. NATRI CLORID [Concomitant]
     Route: 042
     Dates: start: 20220825, end: 20220825
  4. ZOMETA [Concomitant]
     Active Substance: ZOLEDRONIC ACID
     Route: 042
     Dates: start: 20220728, end: 20220728
  5. LEDROBON [Concomitant]
     Route: 042
     Dates: start: 20220825, end: 20220825
  6. TENOFOVIR [Concomitant]
     Active Substance: TENOFOVIR
     Indication: Hepatitis
     Route: 048
     Dates: start: 20220425, end: 20231109
  7. ADRENOXYL [Concomitant]
     Indication: Haemoptysis
     Route: 048
     Dates: start: 20220728, end: 20220806
  8. DIETARY SUPPLEMENT\HERBALS\MILK THISTLE [Concomitant]
     Active Substance: MILK THISTLE
     Route: 048
     Dates: start: 20220825, end: 20220922

REACTIONS (1)
  - Haemoptysis [Recovered/Resolved]

NARRATIVE: CASE EVENT DATE: 20220728
